FAERS Safety Report 23361054 (Version 2)
Quarter: 2024Q1

REPORT INFORMATION
  Report Type: Spontaneous
  Country: MX (occurrence: MX)
  Receive Date: 20240103
  Receipt Date: 20240212
  Transmission Date: 20240410
  Serious: No
  Sender: FDA-Public Use
  Company Number: MX-PFIZER INC-202300440055

PATIENT
  Sex: Female

DRUGS (1)
  1. MEDROXYPROGESTERONE [Suspect]
     Active Substance: MEDROXYPROGESTERONE
     Indication: Contraception
     Dosage: UNK
     Dates: start: 20231207, end: 20231207

REACTIONS (1)
  - Incorrect dose administered by device [Unknown]

NARRATIVE: CASE EVENT DATE: 20231207
